FAERS Safety Report 8954434 (Version 2)
Quarter: 2012Q4

REPORT INFORMATION
  Report Type: 
  Country: JP (occurrence: JP)
  Receive Date: 20121207
  Receipt Date: 20121211
  Transmission Date: 20130627
  Serious: Yes (Hospitalization)
  Sender: FDA-Public Use
  Company Number: JP-B.I. PHARMACEUTICALS,INC./RIDGEFIELD-2012-BI-02154NB

PATIENT
  Age: 61 Year
  Sex: Female

DRUGS (2)
  1. BI-SIFROL [Suspect]
     Indication: PARKINSON^S DISEASE
     Dosage: 2.25 mg
     Route: 048
  2. NSAIDS [Concomitant]
     Indication: ARTHRALGIA
     Route: 048

REACTIONS (1)
  - Arthralgia [Not Recovered/Not Resolved]
